FAERS Safety Report 7457515-1 (Version None)
Quarter: 2011Q2

REPORT INFORMATION
  Report Type: 
  Country: None (occurrence: None)
  Receive Date: 20110426
  Receipt Date: 20110411
  Transmission Date: 20111010
  Serious: Yes (Death, Other)
  Sender: FDA-Public Use
  Company Number: AUR-APL-2011-01276

PATIENT
  Age: 40 Year
  Sex: Female

DRUGS (4)
  1. RISPERIDONE [Suspect]
  2. GLUCOVANCE [Suspect]
     Indication: DIABETES MELLITUS
  3. HYDROCHLOROTHIAZIDE [Suspect]
  4. SERTRALINE HYDROCHLORIDE [Suspect]

REACTIONS (9)
  - BLOOD LACTIC ACID INCREASED [None]
  - TOXICITY TO VARIOUS AGENTS [None]
  - VOMITING [None]
  - METABOLIC ACIDOSIS [None]
  - HYPOTENSION [None]
  - LETHARGY [None]
  - HAEMODIALYSIS [None]
  - HYPOGLYCAEMIA [None]
  - MULTIPLE DRUG OVERDOSE [None]
